FAERS Safety Report 6911130-4 (Version None)
Quarter: 2010Q3

REPORT INFORMATION
  Report Type: 
  Country: None (occurrence: None)
  Receive Date: 20100716
  Receipt Date: 20090224
  Transmission Date: 20110219
  Serious: Yes (Hospitalization, Other)
  Sender: FDA-Public Use
  Company Number: 2009160939

PATIENT
  Age: 74 Year
  Sex: Male

DRUGS (7)
  1. CELEBREX [Suspect]
     Indication: PAIN MANAGEMENT
     Dosage: ORAL
     Route: 048
  2. BEXTRA [Suspect]
     Indication: PAIN MANAGEMENT
     Dosage: ORAL
     Route: 048
     Dates: start: 19770101
  3. COUMADIN [Concomitant]
  4. DYAZIDE [Concomitant]
  5. ASPIRIN [Concomitant]
  6. ZANTAC 150 [Concomitant]
  7. VICODIN [Concomitant]

REACTIONS (2)
  - ACUTE MYOCARDIAL INFARCTION [None]
  - CEREBROVASCULAR ACCIDENT [None]
